FAERS Safety Report 5037616-8 (Version None)
Quarter: 2006Q2

REPORT INFORMATION
  Report Type: 
  Country: None (occurrence: None)
  Receive Date: 20060626
  Receipt Date: 20060626
  Transmission Date: 20061013
  Serious: Yes (Disabling)
  Sender: FDA-Public Use
  Company Number: None

PATIENT
  Sex: Male
  Weight: 116.5744 kg

DRUGS (5)
  1. AVELOX [Suspect]
     Indication: SINUSITIS
     Dosage: 1/DAILY PO
     Route: 048
     Dates: start: 20060608, end: 20060614
  2. AVAPRO [Concomitant]
  3. CARDURA [Concomitant]
  4. TIMOPTIC [Concomitant]
  5. MOTRIN [Concomitant]

REACTIONS (1)
  - PAIN [None]
